FAERS Safety Report 11883226 (Version 3)
Quarter: 2016Q1

REPORT INFORMATION
  Report Type: Spontaneous
  Country: US (occurrence: US)
  Receive Date: 20151231
  Receipt Date: 20160222
  Transmission Date: 20160526
  Serious: Yes (Death, Hospitalization, Other)
  Sender: FDA-Public Use
  Company Number: US-SMITH AND NEPHEW, INC-2015SMT00673

PATIENT
  Age: 85 Year
  Sex: Female

DRUGS (1)
  1. REGRANEX [Suspect]
     Active Substance: BECAPLERMIN
     Indication: TOE AMPUTATION
     Dosage: UNK
     Route: 061
     Dates: start: 201509

REACTIONS (8)
  - Hypoglycaemia [Unknown]
  - Dyspnoea [Unknown]
  - Acute kidney injury [Unknown]
  - Osteomyelitis [Fatal]
  - Cardiac failure acute [Fatal]
  - Circulatory collapse [Fatal]
  - Diabetic foot infection [Unknown]
  - Cardio-respiratory arrest [Fatal]

NARRATIVE: CASE EVENT DATE: 20151106
